FAERS Safety Report 10645494 (Version 1)
Quarter: 2014Q4

REPORT INFORMATION
  Report Type: Spontaneous
  Country: US (occurrence: US)
  Receive Date: 20141211
  Receipt Date: 20141211
  Transmission Date: 20150529
  Serious: No
  Sender: FDA-Public Use
  Company Number: US-TEVA-522885USA

PATIENT
  Age: 38 Year
  Sex: Female

DRUGS (1)
  1. TEMOZOLOMIDE. [Suspect]
     Active Substance: TEMOZOLOMIDE
     Indication: BRAIN NEOPLASM
     Dosage: 250 MILLIGRAM DAILY;
     Route: 048
     Dates: start: 20140914

REACTIONS (1)
  - Sinus headache [Unknown]

NARRATIVE: CASE EVENT DATE: 20141106
